FAERS Safety Report 7619340-8 (Version None)
Quarter: 2011Q3

REPORT INFORMATION
  Report Type: 
  Country: None (occurrence: None)
  Receive Date: 20110719
  Receipt Date: 20110712
  Transmission Date: 20111222
  Serious: No
  Sender: FDA-Public Use
  Company Number: US-B.I. PHARMACEUTICALS,INC./RIDGEFIELD-2011-BP-17556BP

PATIENT
  Sex: Male

DRUGS (9)
  1. CAYENNE [Concomitant]
     Indication: ASTHENIA
     Dosage: 900 MG
     Route: 048
     Dates: start: 19810101
  2. PRADAXA [Suspect]
     Indication: ATRIAL FIBRILLATION
     Dosage: 300 MG
     Route: 048
     Dates: start: 20110401
  3. TRAVATAN [Concomitant]
     Indication: GLAUCOMA
     Dates: start: 19800101
  4. ALLOPURINOL [Concomitant]
     Indication: GOUT
     Dates: start: 20061101
  5. TIMOLOL MALEATE [Concomitant]
     Indication: GLAUCOMA
     Dates: start: 19690101
  6. COZAAR [Concomitant]
     Indication: HYPERTENSION
     Dates: start: 20060101
  7. ASPIRIN [Concomitant]
     Indication: ATRIAL FIBRILLATION
     Dosage: 81 MG
     Route: 048
     Dates: start: 20010101
  8. DILTIAZEM [Concomitant]
     Indication: ANGINA PECTORIS
     Dates: start: 20061101
  9. FISH OIL [Concomitant]
     Indication: HYPERTENSION
     Dates: start: 19850101

REACTIONS (2)
  - SKIN DISCOLOURATION [None]
  - FLUSHING [None]
